FAERS Safety Report 22309386 (Version 2)
Quarter: 2023Q2

REPORT INFORMATION
  Report Type: Spontaneous
  Country: US (occurrence: US)
  Receive Date: 20230511
  Receipt Date: 20230628
  Transmission Date: 20230722
  Serious: No
  Sender: FDA-Public Use
  Company Number: US-PFIZER INC-202300183070

PATIENT
  Age: 13 Year
  Sex: Male
  Weight: 49.887 kg

DRUGS (2)
  1. GENOTROPIN [Suspect]
     Active Substance: SOMATROPIN
     Dosage: UNK
  2. ZYRTEC [Concomitant]
     Active Substance: CETIRIZINE HYDROCHLORIDE
     Indication: Hypersensitivity
     Dosage: 10 MG, 3 TIMES A WEEK
     Route: 048
     Dates: start: 201904

REACTIONS (2)
  - Device use error [Unknown]
  - Drug dose omission by device [Unknown]
